FAERS Safety Report 7353286-8 (Version None)
Quarter: 2011Q1

REPORT INFORMATION
  Report Type: 
  Country: None (occurrence: None)
  Receive Date: 20110315
  Receipt Date: 20110302
  Transmission Date: 20110831
  Serious: Yes (Hospitalization)
  Sender: FDA-Public Use
  Company Number: US-ACTELION-A-US2010-41291

PATIENT

DRUGS (5)
  1. CALCIUM CHANNEL BLOCKERS [Concomitant]
  2. METOPROLOL [Concomitant]
  3. TREPROSTINIL [Concomitant]
  4. TRACLEER [Suspect]
     Indication: PULMONARY ARTERIAL HYPERTENSION
     Dosage: UNK
     Route: 048
     Dates: start: 20080716
  5. REVATIO [Concomitant]

REACTIONS (5)
  - CONDITION AGGRAVATED [None]
  - SYNCOPE [None]
  - LOSS OF CONSCIOUSNESS [None]
  - HYPOTENSION [None]
  - PULMONARY HYPERTENSION [None]
